FAERS Safety Report 13682105 (Version 1)
Quarter: 2017Q2

REPORT INFORMATION
  Report Type: Spontaneous
  Country: US (occurrence: US)
  Receive Date: 20170623
  Receipt Date: 20170623
  Transmission Date: 20170830
  Serious: No
  Sender: FDA-Public Use
  Company Number: US-IPSEN BIOPHARMACEUTICALS, INC.-2016-02592

PATIENT
  Sex: Female

DRUGS (3)
  1. DYSPORT [Suspect]
     Active Substance: ABOBOTULINUMTOXINA
     Indication: SKIN WRINKLING
     Dosage: 75 U
     Route: 030
     Dates: start: 20160301, end: 20160301
  2. DYSPORT [Suspect]
     Active Substance: ABOBOTULINUMTOXINA
     Indication: PRODUCT USE IN UNAPPROVED INDICATION
  3. DYSPORT [Suspect]
     Active Substance: ABOBOTULINUMTOXINA
     Indication: SKIN WRINKLING

REACTIONS (8)
  - Nerve injury [Unknown]
  - Overdose [Unknown]
  - Injection site scar [Unknown]
  - Periorbital oedema [Unknown]
  - Anxiety [Unknown]
  - Urticaria [Unknown]
  - Depression [Unknown]
  - Visual impairment [Unknown]

NARRATIVE: CASE EVENT DATE: 20160303
